FAERS Safety Report 14101502 (Version 1)
Quarter: 2017Q4

REPORT INFORMATION
  Report Type: Spontaneous
  Country: US (occurrence: US)
  Receive Date: 20171017
  Receipt Date: 20171017
  Transmission Date: 20180321
  Serious: Yes (Life-Threatening)
  Sender: FDA-Public Use
  Company Number: None

PATIENT
  Age: 81 Year
  Sex: Female
  Weight: 67.95 kg

DRUGS (1)
  1. TRULICITY [Suspect]
     Active Substance: DULAGLUTIDE
     Indication: DIABETES MELLITUS
     Dosage: ?          OTHER FREQUENCY:WEEKLY;?
     Route: 058
     Dates: start: 20170901, end: 20171002

REACTIONS (5)
  - Acute lymphocytic leukaemia [None]
  - Influenza like illness [None]
  - Asthenia [None]
  - Nausea [None]
  - Platelet count decreased [None]

NARRATIVE: CASE EVENT DATE: 20171006
